FAERS Safety Report 8313219-4 (Version None)
Quarter: 2012Q2

REPORT INFORMATION
  Report Type: 
  Country: None (occurrence: None)
  Receive Date: 20120426
  Receipt Date: 20120418
  Transmission Date: 20120825
  Serious: Yes (Other)
  Sender: FDA-Public Use
  Company Number: US-UCBSA-055723

PATIENT

DRUGS (3)
  1. OXCARBAZEPINE [Concomitant]
  2. LACOSAMIDE [Suspect]
     Dosage: 20 MG/KG
  3. LEVETIRACETAM [Suspect]

REACTIONS (2)
  - ENCEPHALOPATHY [None]
  - ATAXIA [None]
